FAERS Safety Report 14650808 (Version 1)
Quarter: 2018Q1

REPORT INFORMATION
  Report Type: Report from Study
  Country: US (occurrence: US)
  Receive Date: 20180316
  Receipt Date: 20180316
  Transmission Date: 20180509
  Serious: Yes (Death)
  Sender: FDA-Public Use
  Company Number: US-ACTELION-A-NJ2017-164563

PATIENT
  Age: 60 Year
  Sex: Female

DRUGS (1)
  1. UPTRAVI [Suspect]
     Active Substance: SELEXIPAG
     Indication: PULMONARY ARTERIAL HYPERTENSION
     Dosage: 200 MCG, BID
     Route: 048
     Dates: start: 20171214

REACTIONS (9)
  - Feeding disorder [Unknown]
  - Headache [Not Recovered/Not Resolved]
  - Walking aid user [Unknown]
  - Frequent bowel movements [Unknown]
  - Asthenia [Unknown]
  - Death [Fatal]
  - Dehydration [Unknown]
  - Vomiting [Recovered/Resolved]
  - Abdominal pain [Unknown]
